FAERS Safety Report 8818294 (Version 1)
Quarter: 2012Q4

REPORT INFORMATION
  Report Type: 
  Country: CN (occurrence: CN)
  Receive Date: 20121001
  Receipt Date: 20121001
  Transmission Date: 20130627
  Serious: Yes (Death)
  Sender: FDA-Public Use
  Company Number: CN-ASTRAZENECA-2012SE75014

PATIENT
  Age: 63 Year
  Sex: Female

DRUGS (1)
  1. ROPIVACAINE [Suspect]
     Route: 065

REACTIONS (2)
  - Cardiac arrest [Fatal]
  - Respiratory arrest [Fatal]
